FAERS Safety Report 17324685 (Version 28)
Quarter: 2025Q2

REPORT INFORMATION
  Report Type: Report from Study
  Country: US (occurrence: US)
  Receive Date: 20200127
  Receipt Date: 20250404
  Transmission Date: 20250717
  Serious: Yes (Hospitalization, Other)
  Sender: TAKEDA
  Company Number: US-SHIRE-US202003035

PATIENT
  Age: 56 Year
  Sex: Female
  Weight: 60 kg

DRUGS (41)
  1. HUMAN IMMUNOGLOBULIN G [Suspect]
     Active Substance: HUMAN IMMUNOGLOBULIN G
     Indication: Immunodeficiency common variable
     Dosage: 25 GRAM, Q4WEEKS
     Dates: start: 20191011
  2. HUMAN IMMUNOGLOBULIN G [Suspect]
     Active Substance: HUMAN IMMUNOGLOBULIN G
     Indication: Illness
     Dosage: 25 GRAM, Q4WEEKS
     Dates: start: 20191012
  3. HUMAN IMMUNOGLOBULIN G [Suspect]
     Active Substance: HUMAN IMMUNOGLOBULIN G
     Indication: Pulmonary vasculitis
     Dosage: 30 GRAM, Q4WEEKS
  4. HUMAN IMMUNOGLOBULIN G [Suspect]
     Active Substance: HUMAN IMMUNOGLOBULIN G
     Indication: Hypogammaglobulinaemia
     Dosage: 30 GRAM, Q4WEEKS
  5. ACETAMINOPHEN [Concomitant]
     Active Substance: ACETAMINOPHEN
  6. DIPHENHYDRAMINE [Concomitant]
     Active Substance: DIPHENHYDRAMINE
  7. SODIUM CHLORIDE [Concomitant]
     Active Substance: SODIUM CHLORIDE
  8. EPINEPHRINE [Concomitant]
     Active Substance: EPINEPHRINE
  9. Lmx [Concomitant]
  10. DIMETHYL SULFONE [Concomitant]
     Active Substance: DIMETHYL SULFONE
  11. Citracal + D3 [Concomitant]
  12. HERBALS\TURMERIC [Concomitant]
     Active Substance: HERBALS\TURMERIC
  13. Collagen hydrolysate [Concomitant]
  14. NUCALA [Concomitant]
     Active Substance: MEPOLIZUMAB
  15. VITAMIN D2 [Concomitant]
     Active Substance: ERGOCALCIFEROL
     Indication: Product used for unknown indication
  16. PREDNISONE [Concomitant]
     Active Substance: PREDNISONE
  17. TOBRAMYCIN [Concomitant]
     Active Substance: TOBRAMYCIN
  18. ALBUTEROL\IPRATROPIUM [Concomitant]
     Active Substance: ALBUTEROL\IPRATROPIUM
  19. OMEPRAZOLE [Concomitant]
     Active Substance: OMEPRAZOLE
  20. PANTOPRAZOLE SODIUM [Concomitant]
     Active Substance: PANTOPRAZOLE SODIUM
  21. VIRTUSSIN AC [Concomitant]
     Active Substance: CODEINE PHOSPHATE\GUAIFENESIN
  22. HYDROXYCHLOROQUINE SULFATE [Concomitant]
     Active Substance: HYDROXYCHLOROQUINE SULFATE
  23. MAGNESIUM CITRATE [Concomitant]
     Active Substance: MAGNESIUM CITRATE
  24. ECHINACEA [Concomitant]
     Active Substance: ECHINACEA, UNSPECIFIED
     Indication: Product used for unknown indication
  25. VITAMIN C [Concomitant]
     Active Substance: ASCORBIC ACID
  26. VITAMIN B12 [Concomitant]
     Active Substance: CYANOCOBALAMIN
  27. BIOTIN [Concomitant]
     Active Substance: BIOTIN
  28. BOTOX [Concomitant]
     Active Substance: ONABOTULINUMTOXINA
  29. FASENRA [Concomitant]
     Active Substance: BENRALIZUMAB
  30. MUCINEX [Concomitant]
     Active Substance: GUAIFENESIN
  31. SUMATRIPTAN [Concomitant]
     Active Substance: SUMATRIPTAN
  32. SYMBICORT [Concomitant]
     Active Substance: BUDESONIDE\FORMOTEROL FUMARATE DIHYDRATE
  33. IPRATROPIUM [Concomitant]
     Active Substance: IPRATROPIUM
  34. LEVOFLOXACIN [Concomitant]
     Active Substance: LEVOFLOXACIN
  35. VITAMIN B COMPLEX [Concomitant]
     Active Substance: CYANOCOBALAMIN\DEXPANTHENOL\NIACINAMIDE\PYRIDOXINE HYDROCHLORIDE\RIBOFLAVIN 5^-PHOSPHATE SODIUM\THIA
  36. VITAMIN D [Concomitant]
     Active Substance: VITAMIN D NOS
  37. AMOXICILLIN [Concomitant]
     Active Substance: AMOXICILLIN
  38. DIPHENHYDRAMINE HYDROCHLORIDE [Concomitant]
     Active Substance: DIPHENHYDRAMINE HYDROCHLORIDE
  39. TOBRAMYCIN SULFATE [Concomitant]
     Active Substance: TOBRAMYCIN SULFATE
  40. MAGNESIUM [Concomitant]
     Active Substance: MAGNESIUM
  41. AMOXICILLIN\CLAVULANIC ACID [Concomitant]
     Active Substance: AMOXICILLIN\CLAVULANIC ACID

REACTIONS (28)
  - Pneumonia pseudomonal [Unknown]
  - COVID-19 [Unknown]
  - Pseudomonas infection [Unknown]
  - Respiratory tract infection [Unknown]
  - Pneumonia [Unknown]
  - Neuropathy peripheral [Unknown]
  - Asthma [Unknown]
  - Infection [Unknown]
  - Infusion related reaction [Unknown]
  - Pharyngitis streptococcal [Unknown]
  - Muscle strain [Unknown]
  - Sputum discoloured [Recovered/Resolved]
  - Foot fracture [Unknown]
  - Bone pain [Unknown]
  - Productive cough [Recovered/Resolved]
  - Vitamin D decreased [Unknown]
  - Exostosis [Unknown]
  - Insurance issue [Unknown]
  - Product use issue [Unknown]
  - Feeling abnormal [Unknown]
  - Epistaxis [Recovered/Resolved]
  - Pain [Unknown]
  - Hypertension [Unknown]
  - Arthralgia [Unknown]
  - Cough [Unknown]
  - Migraine [Unknown]
  - Pruritus [Unknown]
  - Urticaria [Unknown]

NARRATIVE: CASE EVENT DATE: 20200404
